FAERS Safety Report 7334947-3 (Version None)
Quarter: 2011Q1

REPORT INFORMATION
  Report Type: 
  Country: None (occurrence: None)
  Receive Date: 20110223
  Receipt Date: 20101110
  Transmission Date: 20110831
  Serious: Yes (Hospitalization, Other)
  Sender: FDA-Public Use
  Company Number: 2010SCPR002299

PATIENT
  Age: 86 Year
  Sex: Female

DRUGS (12)
  1. ATORVASTATIN CALCIUM [Concomitant]
  2. FEXOFENADINE HCL (FEXOFENADINE HYDROCHLORIDE) [Concomitant]
  3. DIPHENHYDRAMNE-LIDOCAINE (DIPHENYDRAMINE-LIDOCAINE) [Concomitant]
  4. PANTOPRAZOLE SODIUM [Concomitant]
  5. BISACODYL (BISACODYL) [Concomitant]
  6. NABUMETONE [Suspect]
     Indication: PAIN IN EXTREMITY
     Dosage: 2 DF, ONCE DAILY, ORAL
     Route: 048
     Dates: start: 20080101, end: 20080101
  7. AMLODIPINE BESYLATE [Concomitant]
  8. COLACE (DOCUSATE SODIUM) [Concomitant]
  9. ACETAMINOPHEN [Concomitant]
  10. CAMPHOR- PHENOL (CAMPHOR-PHENOL) [Concomitant]
  11. MAALOX /00082501/ (ALUMINUM HYDROXIDE, MAGNESIUM HYDROXIDE) [Concomitant]
  12. SENALCOT (SENALCOT) [Concomitant]

REACTIONS (1)
  - STEVENS-JOHNSON SYNDROME [None]
